FAERS Safety Report 7406655-1 (Version None)
Quarter: 2011Q2

REPORT INFORMATION
  Report Type: 
  Country: None (occurrence: None)
  Receive Date: 20110406
  Receipt Date: 20110406
  Transmission Date: 20111010
  Serious: Yes (Other)
  Sender: FDA-Public Use
  Company Number: None

PATIENT
  Age: 61 Year
  Sex: Female
  Weight: 90.6 kg

DRUGS (12)
  1. DRISDOL [Concomitant]
  2. ALTACE [Concomitant]
  3. EVEROLIMUS [Suspect]
     Indication: BREAST CANCER METASTATIC
     Dosage: 10 MG ONCE A DAY
     Dates: start: 20110224, end: 20110317
  4. AFINITOR [Concomitant]
  5. FISH OIL [Concomitant]
  6. VITAMINS [Concomitant]
  7. ARMASIN [Concomitant]
  8. ZYRTEC [Concomitant]
  9. ALLOPURINOL [Concomitant]
  10. HYDROCHLOROTHIAZIDE [Concomitant]
  11. INSULIN [Concomitant]
  12. DENOSOMAB [Concomitant]

REACTIONS (1)
  - BLOOD TRIGLYCERIDES INCREASED [None]
